FAERS Safety Report 10327834 (Version 1)
Quarter: 2014Q3

REPORT INFORMATION
  Report Type: Spontaneous
  Country: US (occurrence: US)
  Receive Date: 20140721
  Receipt Date: 20140721
  Transmission Date: 20150326
  Serious: No
  Sender: FDA-Public Use
  Company Number: US-AMGEN INC.-USASP2014053425

PATIENT
  Age: 60 Year
  Sex: Female

DRUGS (2)
  1. XELJANZ [Concomitant]
     Active Substance: TOFACITINIB CITRATE
     Dosage: 5 MG, BID
  2. ENBREL [Suspect]
     Active Substance: ETANERCEPT
     Indication: RHEUMATOID ARTHRITIS
     Dosage: 50 MG, QWK
     Route: 065
     Dates: start: 20130812, end: 201403

REACTIONS (5)
  - Arthralgia [Recovered/Resolved]
  - Inflammation [Recovered/Resolved]
  - Drug ineffective [Recovered/Resolved]
  - Musculoskeletal disorder [Recovered/Resolved]
  - Red blood cell sedimentation rate abnormal [Recovered/Resolved]

NARRATIVE: CASE EVENT DATE: 20130812
